FAERS Safety Report 9763892 (Version 1)
Quarter: 2013Q4

REPORT INFORMATION
  Report Type: Spontaneous
  Country: US (occurrence: US)
  Receive Date: 20131216
  Receipt Date: 20131216
  Transmission Date: 20140711
  Serious: No
  Sender: FDA-Public Use
  Company Number: US-BIOGENIDEC-2013BI116236

PATIENT
  Age: 37 Year
  Sex: Female

DRUGS (6)
  1. TECFIDERA [Suspect]
     Indication: MULTIPLE SCLEROSIS
     Route: 048
     Dates: start: 20131115
  2. TECFIDERA [Suspect]
     Indication: MULTIPLE SCLEROSIS
     Route: 048
  3. BIOTIN [Concomitant]
  4. FISH OIL [Concomitant]
  5. PRILOSEC [Concomitant]
  6. VITAMIN D [Concomitant]

REACTIONS (4)
  - Hangover [Recovered/Resolved]
  - Nasopharyngitis [Unknown]
  - Feeling cold [Unknown]
  - Pain [Unknown]
